FAERS Safety Report 13065790 (Version 1)
Quarter: 2016Q4

REPORT INFORMATION
  Report Type: Spontaneous
  Country: CH (occurrence: CH)
  Receive Date: 20161227
  Receipt Date: 20161227
  Transmission Date: 20170207
  Serious: Yes (Hospitalization)
  Sender: FDA-Public Use
  Company Number: CH-PFIZER INC-2016581515

PATIENT
  Sex: Male
  Weight: 3.19 kg

DRUGS (3)
  1. TEMESTA [Suspect]
     Active Substance: LORAZEPAM
     Indication: DEPRESSION
     Dosage: 2.5MG, 2X/DAY
     Route: 064
     Dates: start: 2014
  2. IMOVANE [Suspect]
     Active Substance: ZOPICLONE
     Indication: DEPRESSION
     Dosage: 7.5MG, 2X/DAY
     Route: 064
     Dates: start: 201509
  3. EFFEXOR XR [Suspect]
     Active Substance: VENLAFAXINE HYDROCHLORIDE
     Indication: DEPRESSION
     Dosage: 225 MG, 1X/DAY
     Route: 064
     Dates: start: 2014

REACTIONS (5)
  - Hypotonia neonatal [Recovered/Resolved]
  - Hypoglycaemia neonatal [Recovered/Resolved]
  - Neonatal respiratory distress syndrome [Recovered/Resolved]
  - Maternal exposure during pregnancy [Recovered/Resolved]
  - Neonatal behavioural syndrome [Recovered/Resolved]

NARRATIVE: CASE EVENT DATE: 20151211
